FAERS Safety Report 9452581 (Version 1)
Quarter: 2013Q3

REPORT INFORMATION
  Report Type: Spontaneous
  Country: US (occurrence: US)
  Receive Date: 20130812
  Receipt Date: 20130812
  Transmission Date: 20140515
  Serious: No
  Sender: FDA-Public Use
  Company Number: US-PFIZER INC-2013233153

PATIENT
  Age: 60 Year
  Sex: Female
  Weight: 58.5 kg

DRUGS (3)
  1. NEURONTIN [Suspect]
     Indication: PAIN
     Dosage: 300 MG, 1X/DAY
     Route: 048
     Dates: start: 20110710
  2. IMITREX [Concomitant]
     Indication: MIGRAINE
     Dosage: UNK
  3. VITAMIN D3 [Concomitant]
     Dosage: UNK

REACTIONS (1)
  - Dysphagia [Unknown]
